FAERS Safety Report 12699516 (Version 3)
Quarter: 2016Q3

REPORT INFORMATION
  Report Type: Spontaneous
  Country: US (occurrence: US)
  Receive Date: 20160830
  Receipt Date: 20160912
  Transmission Date: 20161109
  Serious: Yes (Other)
  Sender: FDA-Public Use
  Company Number: US-JUBILANT CADISTA PHARMACEUTICALS-2016JUB00312

PATIENT
  Age: 22 Year
  Sex: Female
  Weight: 86 kg

DRUGS (8)
  1. LOSARTAN POTASSIUM. [Concomitant]
     Active Substance: LOSARTAN POTASSIUM
     Dosage: 100 MG, 1X/DAY
     Dates: start: 2012, end: 20160725
  2. HYDROXYCHLOROQUINE SULFATE. [Concomitant]
     Active Substance: HYDROXYCHLOROQUINE SULFATE
     Dosage: 200 MG, 2X/DAY
     Dates: start: 2012
  3. FERROUS SULFATE. [Concomitant]
     Active Substance: FERROUS SULFATE
     Dosage: 325 MG, 1X/DAY
  4. MYCOPHENOLATE MOFETIL. [Suspect]
     Active Substance: MYCOPHENOLATE MOFETIL
     Dosage: 1000 MG, 1X/DAY
     Route: 048
     Dates: start: 2014, end: 20160725
  5. CALCIUM WITH VITAMIN D [Concomitant]
     Active Substance: CALCIUM\VITAMIN D
     Dosage: 1 TABLETS, 2X/DAY
     Dates: start: 2012
  6. OMEPRAZOLE. [Concomitant]
     Active Substance: OMEPRAZOLE
     Dosage: 20 MG, 1X/DAY
     Dates: start: 2012
  7. MICRONOR [Concomitant]
     Active Substance: NORETHINDRONE
     Dosage: 0.35 MG, 1X/DAY
     Dates: start: 2012
  8. MYCOPHENOLATE MOFETIL. [Suspect]
     Active Substance: MYCOPHENOLATE MOFETIL
     Indication: LUPUS NEPHRITIS
     Dosage: 1500 MG, 1X/DAY
     Route: 048
     Dates: start: 2014, end: 20160725

REACTIONS (1)
  - Exposure during pregnancy [Unknown]

NARRATIVE: CASE EVENT DATE: 20160723
